FAERS Safety Report 15324373 (Version 1)
Quarter: 2018Q3

REPORT INFORMATION
  Report Type: Report from Study
  Country: US (occurrence: US)
  Receive Date: 20180828
  Receipt Date: 20180828
  Transmission Date: 20181010
  Serious: Yes (Hospitalization)
  Sender: FDA-Public Use
  Company Number: US-ROCHE-1502284

PATIENT
  Age: 68 Year
  Sex: Female
  Weight: 85.4 kg

DRUGS (45)
  1. OBINUTUZUMAB. [Suspect]
     Active Substance: OBINUTUZUMAB
     Indication: NON-HODGKIN^S LYMPHOMA
     Dosage: MOST RECENT DOSE WAS TAKEN ON 18/NOV/2014
     Route: 065
     Dates: start: 20141027, end: 20141118
  2. VITAMIN D3 [Concomitant]
     Active Substance: CHOLECALCIFEROL
     Route: 065
     Dates: start: 2012
  3. KAYEXALATE [Concomitant]
     Active Substance: SODIUM POLYSTYRENE SULFONATE
     Indication: BLOOD POTASSIUM DECREASED
     Route: 065
     Dates: start: 20141030, end: 20141030
  4. LASIX [Concomitant]
     Active Substance: FUROSEMIDE
     Dosage: INDICATION: MANAGEMENT OF ELECTROLYTE IMBALANCE + PREVENTION OF TLS AS PER PROTOCOL
     Route: 065
     Dates: start: 20141030, end: 20141030
  5. TYLENOL [Concomitant]
     Active Substance: ACETAMINOPHEN
     Indication: HEADACHE
     Route: 065
     Dates: start: 20141030, end: 20141101
  6. TYLENOL [Concomitant]
     Active Substance: ACETAMINOPHEN
     Indication: PREMEDICATION
     Route: 065
     Dates: start: 20141118, end: 20141118
  7. NEULASTA [Concomitant]
     Active Substance: PEGFILGRASTIM
     Indication: PROPHYLAXIS
     Dosage: SELECT IF ONGOING=NO
     Route: 065
     Dates: start: 20141119, end: 20141119
  8. POTASSIUM CHLORIDE. [Concomitant]
     Active Substance: POTASSIUM CHLORIDE
     Indication: BLOOD POTASSIUM DECREASED
     Route: 065
     Dates: start: 20141031, end: 20141101
  9. BENADRYL [Concomitant]
     Active Substance: DIPHENHYDRAMINE HYDROCHLORIDE
     Indication: PREMEDICATION
     Route: 065
     Dates: start: 20141104, end: 20141104
  10. COMPAZINE [Concomitant]
     Active Substance: PROCHLORPERAZINE MALEATE
     Indication: NAUSEA
     Route: 065
     Dates: start: 20141027, end: 20141121
  11. VINCRISTINE [Suspect]
     Active Substance: VINCRISTINE
     Indication: NON-HODGKIN^S LYMPHOMA
     Dosage: MOST RECENT DOSE WAS TAKEN ON 18/NOV/2014
     Route: 065
     Dates: start: 20141027, end: 20141118
  12. PREDNISONE. [Suspect]
     Active Substance: PREDNISONE
     Indication: NON-HODGKIN^S LYMPHOMA
     Dosage: MOST RECENT DOSE WAS TAKEN ON 22/NOV/2014
     Route: 065
     Dates: start: 20141027, end: 20141122
  13. DECADRON [Concomitant]
     Active Substance: DEXAMETHASONE
     Indication: PREMEDICATION
     Dosage: SELECT IF ONGOING=NO
     Route: 065
     Dates: start: 20141118, end: 20141118
  14. COLACE [Concomitant]
     Active Substance: DOCUSATE SODIUM
     Dosage: AS A STOOL SOFTENER
     Route: 065
     Dates: start: 20141027
  15. SENNA [Concomitant]
     Active Substance: SENNA LEAF\SENNOSIDES\SENNOSIDES A AND B
     Dosage: AS A LAXATIVE
     Route: 065
     Dates: start: 20141027
  16. CYCLOPHOSPHAMIDE. [Suspect]
     Active Substance: CYCLOPHOSPHAMIDE
     Indication: NON-HODGKIN^S LYMPHOMA
     Dosage: MOST RECENT DOSE WAS TAKEN ON 18/NOV/2014
     Route: 065
     Dates: start: 20141027, end: 20141118
  17. TOPROL XL [Concomitant]
     Active Substance: METOPROLOL SUCCINATE
     Indication: HYPERTENSION
     Route: 065
     Dates: start: 20140327
  18. TYLENOL [Concomitant]
     Active Substance: ACETAMINOPHEN
     Indication: PREMEDICATION
     Route: 065
     Dates: start: 20141111, end: 20141111
  19. TYLENOL [Concomitant]
     Active Substance: ACETAMINOPHEN
     Indication: PAIN
     Route: 065
     Dates: start: 20141129, end: 20141201
  20. BENADRYL [Concomitant]
     Active Substance: DIPHENHYDRAMINE HYDROCHLORIDE
     Indication: PREMEDICATION
     Route: 065
     Dates: start: 20141111, end: 20141111
  21. DOXORUBICIN [Suspect]
     Active Substance: DOXORUBICIN
     Indication: NON-HODGKIN^S LYMPHOMA
     Dosage: MOST RECENT DOSE WAS TAKEN ON 18/NOV/2014
     Route: 065
     Dates: start: 20141027, end: 20141118
  22. HYZAAR [Concomitant]
     Active Substance: HYDROCHLOROTHIAZIDE\LOSARTAN POTASSIUM
     Indication: HYPERTENSION
     Route: 065
     Dates: start: 20110401
  23. TYLENOL [Concomitant]
     Active Substance: ACETAMINOPHEN
     Indication: ARTHRALGIA
     Route: 065
     Dates: start: 20141104, end: 20141104
  24. LOVENOX [Concomitant]
     Active Substance: ENOXAPARIN SODIUM
     Indication: PROPHYLAXIS
     Dosage: INDICATION: ANTICOAGULATION FOR VTE AND PROPHYLAXIS
     Route: 065
     Dates: start: 20141031, end: 20141101
  25. SODIUM CHLORIDE. [Concomitant]
     Active Substance: SODIUM CHLORIDE
     Dosage: HYDRATION DURING CHEMOTHERAPY
     Route: 065
     Dates: start: 20141104, end: 20141104
  26. DECADRON [Concomitant]
     Active Substance: DEXAMETHASONE
     Indication: PREMEDICATION
     Route: 065
     Dates: start: 20141104, end: 20141104
  27. ZOFRAN [Concomitant]
     Active Substance: ONDANSETRON HYDROCHLORIDE
     Route: 065
     Dates: start: 20141027, end: 20141029
  28. PRILOSEC [Concomitant]
     Active Substance: OMEPRAZOLE MAGNESIUM
     Indication: GASTROOESOPHAGEAL REFLUX DISEASE
     Route: 065
     Dates: start: 201311
  29. FISH OIL [Concomitant]
     Active Substance: FISH OIL
     Route: 065
     Dates: start: 2006
  30. ATIVAN [Concomitant]
     Active Substance: LORAZEPAM
     Indication: INSOMNIA
     Route: 065
     Dates: start: 20141104
  31. IBUPROFEN. [Concomitant]
     Active Substance: IBUPROFEN
     Indication: HEADACHE
     Route: 065
     Dates: start: 20141031, end: 20141101
  32. NEULASTA [Concomitant]
     Active Substance: PEGFILGRASTIM
     Indication: PROPHYLAXIS
     Route: 065
     Dates: start: 20141029, end: 20141029
  33. POTASSIUM CHLORIDE. [Concomitant]
     Active Substance: POTASSIUM CHLORIDE
     Indication: HYPOKALAEMIA
     Route: 065
     Dates: start: 20141127, end: 20141127
  34. KYTRIL [Concomitant]
     Active Substance: GRANISETRON HYDROCHLORIDE
     Indication: PROPHYLAXIS
     Route: 065
     Dates: start: 20141104, end: 20141104
  35. KYTRIL [Concomitant]
     Active Substance: GRANISETRON HYDROCHLORIDE
     Route: 065
     Dates: start: 20141111, end: 20141111
  36. ZOFRAN [Concomitant]
     Active Substance: ONDANSETRON HYDROCHLORIDE
     Route: 065
     Dates: start: 20141127, end: 20141201
  37. DECADRON [Concomitant]
     Active Substance: DEXAMETHASONE
     Indication: PREMEDICATION
     Dosage: SELECT IF ONGOING=NO
     Route: 065
     Dates: start: 20141111, end: 20141111
  38. KYTRIL [Concomitant]
     Active Substance: GRANISETRON HYDROCHLORIDE
     Route: 065
     Dates: start: 20141118, end: 20141118
  39. ATIVAN [Concomitant]
     Active Substance: LORAZEPAM
     Indication: ANXIETY
  40. TYLENOL [Concomitant]
     Active Substance: ACETAMINOPHEN
     Indication: ARTHRALGIA
     Route: 065
     Dates: start: 20141105, end: 20141105
  41. SODIUM CHLORIDE. [Concomitant]
     Active Substance: SODIUM CHLORIDE
     Route: 065
     Dates: start: 20141127, end: 20141128
  42. VENETOCLAX. [Suspect]
     Active Substance: VENETOCLAX
     Indication: NON-HODGKIN^S LYMPHOMA
     Route: 048
     Dates: start: 20141030, end: 20141127
  43. ASPIRIN. [Concomitant]
     Active Substance: ASPIRIN
     Route: 065
     Dates: start: 2006
  44. SODIUM CHLORIDE. [Concomitant]
     Active Substance: SODIUM CHLORIDE
     Route: 065
     Dates: start: 20141111, end: 20141111
  45. BENADRYL [Concomitant]
     Active Substance: DIPHENHYDRAMINE HYDROCHLORIDE
     Indication: PREMEDICATION
     Route: 065
     Dates: start: 20141118, end: 20141118

REACTIONS (1)
  - Oesophageal stenosis [Recovered/Resolved]

NARRATIVE: CASE EVENT DATE: 20141127
